FAERS Safety Report 6450944-4 (Version None)
Quarter: 2009Q4

REPORT INFORMATION
  Report Type: 
  Country: None (occurrence: None)
  Receive Date: 20091123
  Receipt Date: 20091119
  Transmission Date: 20100525
  Serious: Yes (Hospitalization)
  Sender: FDA-Public Use
  Company Number: A0818140A

PATIENT
  Age: 54 Year
  Sex: Male

DRUGS (6)
  1. ADVAIR DISKUS 100/50 [Suspect]
     Indication: ASTHMA
     Dosage: 1PUFF TWICE PER DAY
     Route: 055
     Dates: start: 20060101
  2. SINGULAIR [Concomitant]
  3. IPRATROPIUM BROMIDE [Concomitant]
  4. XOPENEX [Concomitant]
  5. AVELOX [Concomitant]
  6. OXYGEN [Concomitant]

REACTIONS (1)
  - OXYGEN SATURATION DECREASED [None]
